FAERS Safety Report 9474149 (Version 2)
Quarter: 2013Q3

REPORT INFORMATION
  Report Type: Report from Study
  Country: US (occurrence: US)
  Receive Date: 20130823
  Receipt Date: 20130823
  Transmission Date: 20140515
  Serious: Yes (Hospitalization, Other)
  Sender: FDA-Public Use
  Company Number: US-ACTELION-A-NJ2011-46303

PATIENT
  Age: 59 Year
  Sex: Male

DRUGS (1)
  1. TRACLEER [Suspect]
     Indication: PULMONARY ARTERIAL HYPERTENSION
     Dosage: UNK
     Route: 048
     Dates: start: 200901

REACTIONS (14)
  - Spinal fusion surgery [Unknown]
  - Spinal laminectomy [Unknown]
  - Exostosis [Unknown]
  - Intrathecal pump insertion [Unknown]
  - Spinal nerve stimulator implantation [Unknown]
  - Device related infection [Unknown]
  - Staphylococcal infection [Unknown]
  - Joint effusion [Unknown]
  - Elbow operation [Unknown]
  - Rotator cuff repair [Unknown]
  - Cataract operation [Unknown]
  - Dialysis [Unknown]
  - Fluid retention [Unknown]
  - Pain [Unknown]
